FAERS Safety Report 6533376-X (Version None)
Quarter: 2010Q1

REPORT INFORMATION
  Report Type: 
  Country: None (occurrence: None)
  Receive Date: 20100111
  Receipt Date: 20100104
  Transmission Date: 20100710
  Serious: Yes (Hospitalization, Other)
  Sender: FDA-Public Use
  Company Number: US-ELI_LILLY_AND_COMPANY-US201001000173

PATIENT
  Sex: Female

DRUGS (2)
  1. FORTEO [Suspect]
     Dates: end: 20090101
  2. FORTEO [Suspect]
     Dates: start: 20090101

REACTIONS (4)
  - CONFUSIONAL STATE [None]
  - FALL [None]
  - HIP FRACTURE [None]
  - SOMNOLENCE [None]
